FAERS Safety Report 15833946 (Version 1)
Quarter: 2019Q1

REPORT INFORMATION
  Report Type: Report from Study
  Country: MX (occurrence: MX)
  Receive Date: 20190116
  Receipt Date: 20190116
  Transmission Date: 20190417
  Serious: Yes (Life-Threatening, Other)
  Sender: FDA-Public Use
  Company Number: PHHY2019MX008425

PATIENT
  Sex: Male
  Weight: 70 kg

DRUGS (5)
  1. ENTRESTO [Suspect]
     Active Substance: SACUBITRIL\VALSARTAN
     Indication: PRODUCT USED FOR UNKNOWN INDICATION
     Dosage: 0.5 DF (200 MG), BID (3 YEARS AGO)
     Route: 048
  2. PROCORALAN [Concomitant]
     Active Substance: IVABRADINE
     Indication: PRODUCT USED FOR UNKNOWN INDICATION
     Dosage: 1 DF, QD (3 YEARS APPROXIMATELY)
     Route: 048
  3. ATORVASTATIN [Concomitant]
     Active Substance: ATORVASTATIN
     Indication: BLOOD CHOLESTEROL ABNORMAL
     Dosage: 40 MG, QD (1 YEAR AGO)
     Route: 048
  4. SPIRONOLACTONE. [Concomitant]
     Active Substance: SPIRONOLACTONE
     Indication: BLOOD POTASSIUM ABNORMAL
     Dosage: 1 DF, PRN
     Route: 048
  5. ENTRESTO [Suspect]
     Active Substance: SACUBITRIL\VALSARTAN
     Dosage: 100 MG, UNK (2 YEARS AGO)
     Route: 065

REACTIONS (12)
  - Cardiac disorder [Unknown]
  - Pharyngitis [Unknown]
  - Apparent death [Unknown]
  - Wrong technique in product usage process [Unknown]
  - Weight decreased [Unknown]
  - Infection [Unknown]
  - Gastritis [Unknown]
  - Pneumonitis [Unknown]
  - Haemoptysis [Unknown]
  - Ejection fraction decreased [Unknown]
  - Bronchitis [Unknown]
  - Visual impairment [Unknown]
